FAERS Safety Report 4656415-X (Version None)
Quarter: 2005Q2

REPORT INFORMATION
  Report Type: 
  Country: None (occurrence: None)
  Receive Date: 20050504
  Receipt Date: 20050420
  Transmission Date: 20051028
  Serious: No
  Sender: FDA-Public Use
  Company Number: 2005AP02457

PATIENT
  Age: 58 Year
  Sex: Male

DRUGS (5)
  1. DIPRIVAN [Suspect]
     Indication: GENERAL ANAESTHESIA
     Dosage: 10 ML/KG /HR IV
     Route: 042
  2. DIPRIVAN [Suspect]
     Indication: SEDATION
     Dosage: 10 ML/KG /HR IV
     Route: 042
  3. DIPRIVAN [Suspect]
     Indication: GENERAL ANAESTHESIA
  4. DIPRIVAN [Suspect]
     Indication: SEDATION
  5. FENTANYL [Concomitant]

REACTIONS (4)
  - DELAYED RECOVERY FROM ANAESTHESIA [None]
  - DYSKINESIA [None]
  - POST PROCEDURAL COMPLICATION [None]
  - RESPIRATORY DEPRESSION [None]
